FAERS Safety Report 14875674 (Version 5)
Quarter: 2018Q4

REPORT INFORMATION
  Report Type: Spontaneous
  Country: US (occurrence: US)
  Receive Date: 20180510
  Receipt Date: 20181207
  Transmission Date: 20190204
  Serious: Yes (Other)
  Sender: FDA-Public Use
  Company Number: US-GLENMARK PHARMACEUTICALS-2018GMK035055

PATIENT

DRUGS (9)
  1. HYDROCODONE [Concomitant]
     Active Substance: HYDROCODONE
     Indication: PAIN
     Dosage: 1 DF, BID
     Route: 065
  2. INDOMETHACIN CAPSULES [Suspect]
     Active Substance: INDOMETHACIN
     Indication: HEADACHE
     Dosage: UNK
     Route: 065
     Dates: start: 2015, end: 2015
  3. METOPROLOL. [Concomitant]
     Active Substance: METOPROLOL
     Indication: DRUG THERAPY
     Dosage: 1 DF, BID
     Route: 065
  4. GABAPENTIN. [Concomitant]
     Active Substance: GABAPENTIN
     Indication: PRODUCT USED FOR UNKNOWN INDICATION
     Dosage: 1 DF, TID
     Route: 065
  5. VITAMIN D [Concomitant]
     Active Substance: CHOLECALCIFEROL
     Indication: PRODUCT USED FOR UNKNOWN INDICATION
     Dosage: UNK; HIGH DOSES
     Route: 065
  6. ZONISAMIDE. [Suspect]
     Active Substance: ZONISAMIDE
     Indication: MUSCLE DISORDER
  7. VITAMIN B6 [Concomitant]
     Active Substance: PYRIDOXINE HYDROCHLORIDE
     Indication: PRODUCT USED FOR UNKNOWN INDICATION
     Dosage: UNK; HIGH DOSES
     Route: 065
  8. VITAMIN B12 [Concomitant]
     Active Substance: CYANOCOBALAMIN
     Indication: PRODUCT USED FOR UNKNOWN INDICATION
     Dosage: UNK; HIGH DOSES
     Route: 065
  9. ZONISAMIDE. [Suspect]
     Active Substance: ZONISAMIDE
     Indication: HEADACHE
     Dosage: 3 DF, HS
     Route: 048
     Dates: start: 201509, end: 2018

REACTIONS (17)
  - Inflammation [Unknown]
  - Malaise [Unknown]
  - Feeling abnormal [Unknown]
  - Lymphadenopathy [Recovering/Resolving]
  - Erythema [Not Recovered/Not Resolved]
  - Swelling [Unknown]
  - Pyrexia [Recovered/Resolved]
  - Abdominal distension [Unknown]
  - Mouth haemorrhage [Recovered/Resolved]
  - Product use in unapproved indication [Unknown]
  - Swelling face [Unknown]
  - Gastrointestinal disorder [Not Recovered/Not Resolved]
  - Sinus disorder [Unknown]
  - Hyperhidrosis [Unknown]
  - Large intestinal haemorrhage [Recovered/Resolved]
  - Gingival swelling [Unknown]
  - Pruritus generalised [Unknown]

NARRATIVE: CASE EVENT DATE: 2015
